FAERS Safety Report 5519349-4 (Version None)
Quarter: 2007Q4

REPORT INFORMATION
  Report Type: 
  Country: None (occurrence: None)
  Receive Date: 20071116
  Receipt Date: 20071101
  Transmission Date: 20080405
  Serious: Yes (Hospitalization)
  Sender: FDA-Public Use
  Company Number: US-GENENTECH-250984

PATIENT
  Sex: Male

DRUGS (6)
  1. BLINDED BEVACIZUMAB [Suspect]
     Indication: PROSTATE CANCER
     Dosage: 1 UNK, Q3W
     Route: 042
     Dates: start: 20060801
  2. BLINDED PLACEBO [Suspect]
     Indication: PROSTATE CANCER
     Dosage: 1 UNK, Q3W
     Route: 042
     Dates: start: 20060801
  3. DEXAMETHASONE [Suspect]
     Indication: PROSTATE CANCER
     Dosage: 8 MG, UNK
     Route: 048
     Dates: start: 20060801
  4. PREDNISONE TAB [Suspect]
     Indication: PROSTATE CANCER
     Dosage: 5 MG, BID
     Route: 048
     Dates: start: 20060801
  5. DOCETAXEL [Suspect]
     Indication: PROSTATE CANCER
     Dosage: 75 MG/M2, Q3W
     Route: 042
     Dates: start: 20060801
  6. ASPIRIN [Suspect]
     Indication: DRUG USE FOR UNKNOWN INDICATION
     Dosage: 81 MG, UNK

REACTIONS (2)
  - DUODENAL ULCER [None]
  - SMALL INTESTINAL HAEMORRHAGE [None]
